FAERS Safety Report 4577856-5 (Version None)
Quarter: 2005Q1

REPORT INFORMATION
  Report Type: 
  Country: None (occurrence: None)
  Receive Date: 20050209
  Receipt Date: 20050202
  Transmission Date: 20050727
  Serious: Yes (Death)
  Sender: FDA-Public Use
  Company Number: 2005EU000209

PATIENT
  Age: 39 Year
  Sex: Male

DRUGS (2)
  1. PROGRAF [Suspect]
     Indication: LIVER TRANSPLANT
     Dosage: 0.10 MG, BID; ORAL
     Route: 048
  2. PREDNISONE [Concomitant]

REACTIONS (8)
  - ANEURYSM RUPTURED [None]
  - HEPATIC ARTERY ANEURYSM [None]
  - INFLAMMATION [None]
  - LIVER TRANSPLANT [None]
  - SEPTIC SHOCK [None]
  - SPLENECTOMY [None]
  - SPLENIC RUPTURE [None]
  - SURGICAL PROCEDURE REPEATED [None]
